FAERS Safety Report 17681159 (Version 1)
Quarter: 2020Q2

REPORT INFORMATION
  Report Type: Other
  Country: US (occurrence: US)
  Receive Date: 20200417
  Receipt Date: 20200417
  Transmission Date: 20200714
  Serious: Yes (Disabling, Other)
  Sender: FDA-Public Use
  Company Number: US-AVEDRO-AVE-2020-0106-AE

PATIENT
  Age: 57 Year
  Sex: Female

DRUGS (5)
  1. GATIFLOXACIN. [Suspect]
     Active Substance: GATIFLOXACIN
     Indication: PRODUCT USED FOR UNKNOWN INDICATION
     Route: 047
  2. PREDNISOLONE ACETATE. [Suspect]
     Active Substance: PREDNISOLONE ACETATE
     Indication: PRODUCT USED FOR UNKNOWN INDICATION
     Route: 047
  3. BROMFENAC [Suspect]
     Active Substance: BROMFENAC SODIUM
     Indication: PRODUCT USED FOR UNKNOWN INDICATION
     Route: 047
  4. CROSS-LINKING PRODUCT(S), UNSPECIFIED [Suspect]
     Active Substance: RIBOFLAVIN 5^-PHOSPHATE SODIUM
     Indication: CORNEAL DISORDER
     Route: 047
  5. BANDAGE CONTACT LENS [Suspect]
     Active Substance: DEVICE
     Indication: PRODUCT USED FOR UNKNOWN INDICATION
     Route: 047

REACTIONS (15)
  - Keratitis fungal [Recovered/Resolved]
  - Hypopyon [Recovered/Resolved]
  - Visual impairment [Recovered/Resolved]
  - Corneal epithelium defect [Recovered/Resolved]
  - Ocular hyperaemia [Unknown]
  - Conjunctival hyperaemia [Unknown]
  - Eye pain [Unknown]
  - Corneal opacity [Unknown]
  - Corneal scar [Recovered/Resolved]
  - Alternaria infection [Recovered/Resolved]
  - Vision blurred [Unknown]
  - Superinfection [Recovered/Resolved]
  - Corneal infiltrates [Unknown]
  - Photophobia [Unknown]
  - Ulcerative keratitis [Unknown]
